FAERS Safety Report 21209764 (Version 1)
Quarter: 2022Q3

REPORT INFORMATION
  Report Type: Spontaneous
  Country: GB (occurrence: GB)
  Receive Date: 20220813
  Receipt Date: 20220813
  Transmission Date: 20221026
  Serious: Yes (Hospitalization, Other)
  Sender: FDA-Public Use
  Company Number: GB-Accord-272630

PATIENT
  Age: 53 Year
  Sex: Male

DRUGS (1)
  1. APIXABAN [Suspect]
     Active Substance: APIXABAN
     Indication: Pulmonary embolism
     Dosage: STOPPED BEFORE THE PROCEDURE AND RESUMED 24 HOURS AFTER

REACTIONS (1)
  - Splenic rupture [Recovered/Resolved]
